FAERS Safety Report 13697435 (Version 1)
Quarter: 2017Q2

REPORT INFORMATION
  Report Type: Spontaneous
  Country: JP (occurrence: JP)
  Receive Date: 20170628
  Receipt Date: 20170628
  Transmission Date: 20170830
  Serious: Yes (Hospitalization, Other)
  Sender: FDA-Public Use
  Company Number: JP-ASTELLAS-2017US006895

PATIENT
  Age: 84 Year
  Sex: Male

DRUGS (1)
  1. TARCEVA [Suspect]
     Active Substance: ERLOTINIB HYDROCHLORIDE
     Indication: NON-SMALL CELL LUNG CANCER
     Route: 048
     Dates: start: 20161226, end: 20170127

REACTIONS (3)
  - Monoplegia [Unknown]
  - Radiation necrosis [Unknown]
  - Paronychia [Not Recovered/Not Resolved]
